FAERS Safety Report 9722890 (Version 1)
Quarter: 2013Q4

REPORT INFORMATION
  Report Type: Spontaneous
  Country: US (occurrence: None)
  Receive Date: 20131126
  Receipt Date: 20131126
  Transmission Date: 20140711
  Serious: Yes (Other)
  Sender: FDA-Public Use
  Company Number: FK201305093

PATIENT
  Age: 70 Year
  Sex: Female

DRUGS (1)
  1. OXALIPLATIN [Suspect]
     Indication: RECTAL ADENOCARCINOMA
     Dosage: 85 MG/M2, INTRAVENOUS
     Route: 042

REACTIONS (5)
  - Ototoxicity [None]
  - Pain in extremity [None]
  - Pain in jaw [None]
  - Trismus [None]
  - Deafness unilateral [None]
